FAERS Safety Report 6762233-9 (Version None)
Quarter: 2010Q2

REPORT INFORMATION
  Report Type: 
  Country: None (occurrence: None)
  Receive Date: 20100609
  Receipt Date: 20100527
  Transmission Date: 20101027
  Serious: Yes (Other)
  Sender: FDA-Public Use
  Company Number: PHHY2010CA34713

PATIENT
  Sex: Male

DRUGS (1)
  1. ZOMETA [Suspect]
     Indication: PROSTATE CANCER
     Dosage: 4 MG EVERY 4 WEEK
     Route: 042
     Dates: start: 20100215

REACTIONS (2)
  - BLOOD TESTOSTERONE DECREASED [None]
  - WHITE BLOOD CELL COUNT DECREASED [None]
